FAERS Safety Report 16967979 (Version 2)
Quarter: 2020Q3

REPORT INFORMATION
  Report Type: Report from Study
  Country: US (occurrence: US)
  Receive Date: 20191028
  Receipt Date: 20191113
  Transmission Date: 20201104
  Serious: Yes (Hospitalization, Other)
  Sender: FDA-Public Use
  Company Number: US-MYLANLABS-2019M1101123

PATIENT
  Age: 76 Year
  Sex: Male
  Weight: 63.8 kg

DRUGS (4)
  1. PREDNISONE. [Suspect]
     Active Substance: PREDNISONE
     Indication: FATIGUE
     Dosage: 10 MILLIGRAM, QD
     Route: 048
     Dates: start: 20190925, end: 20191008
  2. PREDNISONE. [Suspect]
     Active Substance: PREDNISONE
     Dosage: 5 MILLIGRAM, QD
     Route: 048
     Dates: start: 20191009
  3. TREMELIMUMAB. [Suspect]
     Active Substance: TREMELIMUMAB
     Indication: PROSTATE CANCER
     Dosage: 40 MILLIGRAM, EVERY 4 WEEKS
     Route: 058
     Dates: start: 20190410
  4. PREDNISONE. [Suspect]
     Active Substance: PREDNISONE
     Dosage: 7.5 MILLIGRAM, QD
     Route: 065
     Dates: start: 20191016

REACTIONS (2)
  - Muscular weakness [Recovered/Resolved]
  - Gait inability [Unknown]

NARRATIVE: CASE EVENT DATE: 20191011
